FAERS Safety Report 24034691 (Version 1)
Quarter: 2024Q2

REPORT INFORMATION
  Report Type: Spontaneous
  Country: US (occurrence: None)
  Receive Date: 20240628
  Receipt Date: 20240628
  Transmission Date: 20240716
  Serious: Yes (Disabling)
  Sender: FDA-Public Use
  Company Number: None

PATIENT
  Age: 53 Year
  Sex: Male
  Weight: 81 kg

DRUGS (3)
  1. SAPHRIS [Suspect]
     Active Substance: ASENAPINE MALEATE
     Indication: Depression
     Dosage: FREQUENCY : TWICE A DAY;?
     Route: 060
     Dates: start: 20190420, end: 20190520
  2. SAPHRIS [Suspect]
     Active Substance: ASENAPINE MALEATE
     Indication: Adjuvant therapy
  3. MIRTAZAPINE [Concomitant]
     Active Substance: MIRTAZAPINE

REACTIONS (2)
  - Injury [None]
  - Torticollis [None]

NARRATIVE: CASE EVENT DATE: 20190420
